FAERS Safety Report 7090973-3 (Version None)
Quarter: 2010Q4

REPORT INFORMATION
  Report Type: 
  Country: None (occurrence: None)
  Receive Date: 20101105
  Receipt Date: 20101105
  Transmission Date: 20110411
  Serious: Yes (Death)
  Sender: FDA-Public Use
  Company Number: None

PATIENT
  Age: 43 Year
  Sex: Male
  Weight: 92.307 kg

DRUGS (2)
  1. REBIF [Suspect]
     Indication: MULTIPLE SCLEROSIS
     Dosage: 44 MCG TIW SQ-057
     Route: 058
     Dates: start: 20100304
  2. CELLCEPT [Suspect]
     Indication: MULTIPLE SCLEROSIS
     Dosage: 1000 MG 2 TABS/2X DAILY PO-047
     Route: 048
     Dates: start: 20100204

REACTIONS (1)
  - HEAD INJURY [None]
